FAERS Safety Report 7750940-0 (Version None)
Quarter: 2011Q3

REPORT INFORMATION
  Report Type: 
  Country: None (occurrence: None)
  Receive Date: 20110914
  Receipt Date: 20110902
  Transmission Date: 20111222
  Serious: Yes (Disabling)
  Sender: FDA-Public Use
  Company Number: GB-ELI_LILLY_AND_COMPANY-GB201109000557

PATIENT
  Age: 74 Year
  Sex: Male
  Weight: 74.6 kg

DRUGS (10)
  1. METFORMIN HCL [Concomitant]
     Dosage: UNK
  2. SIMVASTATIN [Concomitant]
     Dosage: UNK
  3. SITAGLIPTIN [Concomitant]
     Dosage: UNK
  4. PERINDOPRIL ERBUMINE [Concomitant]
     Dosage: UNK
  5. BYETTA [Suspect]
     Dosage: UNK
     Route: 030
     Dates: start: 20100630, end: 20100828
  6. AMLODIPINE [Concomitant]
     Dosage: UNK
  7. BUMETANIDE [Concomitant]
     Dosage: UNK
  8. ACETAMINOPHEN AND CODEINE PHOSPHATE [Concomitant]
     Dosage: UNK
  9. GLYBURIDE [Concomitant]
     Dosage: UNK
  10. TERBUTALINE SULFATE [Concomitant]
     Dosage: UNK

REACTIONS (1)
  - IDIOPATHIC PULMONARY FIBROSIS [None]
